FAERS Safety Report 16894980 (Version 1)
Quarter: 2019Q4

REPORT INFORMATION
  Report Type: Spontaneous
  Country: CH (occurrence: CH)
  Receive Date: 20191008
  Receipt Date: 20191008
  Transmission Date: 20200122
  Serious: Yes (Other)
  Sender: FDA-Public Use
  Company Number: CH-UCBSA-2019036718

PATIENT
  Age: 37 Year
  Sex: Male
  Weight: 70 kg

DRUGS (4)
  1. APYDAN [OXCARBAZEPINE] [Concomitant]
     Active Substance: OXCARBAZEPINE
     Indication: PRODUCT USED FOR UNKNOWN INDICATION
  2. CIPRALEX [Concomitant]
     Active Substance: ESCITALOPRAM OXALATE
     Indication: PRODUCT USED FOR UNKNOWN INDICATION
  3. BRIVIACT [Suspect]
     Active Substance: BRIVARACETAM
     Indication: PRODUCT USED FOR UNKNOWN INDICATION
     Dosage: 75 MILLIGRAM, 2X/DAY (BID)
     Route: 048
     Dates: start: 20170817, end: 20170901
  4. LAMICTAL [Concomitant]
     Active Substance: LAMOTRIGINE
     Indication: EPILEPSY
     Dosage: 400 MILLIGRAM, 2X/DAY (BID)
     Route: 048
     Dates: start: 2015

REACTIONS (5)
  - Depression [Unknown]
  - Simple partial seizures [Unknown]
  - Alcohol abuse [Unknown]
  - Suicidal ideation [Recovered/Resolved]
  - Substance use [Unknown]

NARRATIVE: CASE EVENT DATE: 2017
